FAERS Safety Report 8119961-2 (Version None)
Quarter: 2012Q1

REPORT INFORMATION
  Report Type: 
  Country: None (occurrence: None)
  Receive Date: 20120207
  Receipt Date: 20120202
  Transmission Date: 20120608
  Serious: Yes (Other)
  Sender: FDA-Public Use
  Company Number: US-PFIZER INC-2012029604

PATIENT
  Sex: Female
  Weight: 70.3 kg

DRUGS (5)
  1. HYDROCODONE [Concomitant]
     Dosage: UNK
  2. SIMVASTATIN [Concomitant]
     Indication: HYPERTENSION
     Dosage: UNK
  3. NEURONTIN [Concomitant]
     Dosage: UNK
  4. PRISTIQ [Suspect]
     Indication: DEPRESSION
     Dosage: ONCE A DAY
     Route: 048
     Dates: start: 20100801, end: 20110301
  5. PERCOCET [Concomitant]
     Dosage: UNK

REACTIONS (2)
  - DEPRESSION [None]
  - ADVERSE EVENT [None]
